FAERS Safety Report 4759758-4 (Version None)
Quarter: 2005Q3

REPORT INFORMATION
  Report Type: 
  Country: None (occurrence: None)
  Receive Date: 20050826
  Receipt Date: 20050708
  Transmission Date: 20060218
  Serious: No
  Sender: FDA-Public Use
  Company Number: 214466

PATIENT
  Age: 40 Year
  Sex: Male
  Weight: 136 kg

DRUGS (1)
  1. RAPTIVA [Suspect]
     Indication: PSORIASIS
     Dosage: 2 VIAL, 1/WEEK
     Dates: start: 20050111

REACTIONS (2)
  - NASAL CONGESTION [None]
  - PRODUCTIVE COUGH [None]
